FAERS Safety Report 6347858-7 (Version None)
Quarter: 2009Q3

REPORT INFORMATION
  Report Type: 
  Country: None (occurrence: None)
  Receive Date: 20090910
  Receipt Date: 20090831
  Transmission Date: 20100115
  Serious: Yes (Hospitalization)
  Sender: FDA-Public Use
  Company Number: BR-AVENTIS-200919893GDDC

PATIENT
  Age: 77 Year
  Sex: Female
  Weight: 92 kg

DRUGS (8)
  1. LANTUS [Suspect]
     Route: 058
     Dates: start: 20070101, end: 20090801
  2. LANTUS [Suspect]
     Route: 058
     Dates: start: 20090828
  3. OPTIPEN (INSULIN PUMP) [Suspect]
     Dates: start: 20070101, end: 20090801
  4. PURAN T4 [Concomitant]
     Indication: HYPOTHYROIDISM
     Route: 048
  5. HUMALOG [Concomitant]
     Dates: start: 20090801
  6. UNKNOWN DRUG [Concomitant]
     Dosage: DOSE QUANTITY: 1
     Route: 048
  7. ANTIBIOTICS [Concomitant]
     Dosage: DOSE QUANTITY: 1
     Route: 048
  8. CIPROBIOT [Concomitant]
     Route: 048

REACTIONS (2)
  - ESCHERICHIA URINARY TRACT INFECTION [None]
  - HYPERGLYCAEMIA [None]
